FAERS Safety Report 5429340-4 (Version None)
Quarter: 2007Q3

REPORT INFORMATION
  Report Type: 
  Country: None (occurrence: None)
  Receive Date: 20070827
  Receipt Date: 20070827
  Transmission Date: 20080115
  Serious: Yes (Other)
  Sender: FDA-Public Use
  Company Number: None

PATIENT
  Age: 4 Year
  Sex: Male
  Weight: 18.1439 kg

DRUGS (3)
  1. ZYRTEC [Suspect]
     Indication: COUGH
     Dosage: 1 TEASPON 1 X PER DAY PO
     Route: 048
     Dates: start: 20070817, end: 20070824
  2. ZYRTEC [Suspect]
     Indication: HYPERSENSITIVITY
     Dosage: 1 TEASPON 1 X PER DAY PO
     Route: 048
     Dates: start: 20070817, end: 20070824
  3. ZYRTEC [Suspect]
     Indication: POSTNASAL DRIP
     Dosage: 1 TEASPON 1 X PER DAY PO
     Route: 048
     Dates: start: 20070817, end: 20070824

REACTIONS (3)
  - ABNORMAL BEHAVIOUR [None]
  - AGITATION [None]
  - ANGER [None]
